FAERS Safety Report 22155188 (Version 1)
Quarter: 2023Q1

REPORT INFORMATION
  Report Type: Spontaneous
  Country: US (occurrence: None)
  Receive Date: 20230329
  Receipt Date: 20230329
  Transmission Date: 20230417
  Serious: Yes (Other)
  Sender: FDA-Public Use
  Company Number: None

PATIENT
  Age: 56 Year
  Sex: Female
  Weight: 67.5 kg

DRUGS (1)
  1. LUGOLS SOLUTION [Suspect]
     Active Substance: IODINE
     Indication: Hypothyroidism
     Route: 060
     Dates: start: 20230329, end: 20230329

REACTIONS (4)
  - Feeling hot [None]
  - Erythema [None]
  - Pruritus [None]
  - Hypersensitivity [None]

NARRATIVE: CASE EVENT DATE: 20230329
